FAERS Safety Report 4378722-0 (Version None)
Quarter: 2004Q2

REPORT INFORMATION
  Report Type: 
  Country: None (occurrence: None)
  Receive Date: 20040616
  Receipt Date: 20040217
  Transmission Date: 20050107
  Serious: Yes (Death, Disabling)
  Sender: FDA-Public Use
  Company Number: PHBS2004JP02409

PATIENT
  Age: 77 Year
  Sex: Female

DRUGS (1)
  1. GLEEVEC [Suspect]
     Indication: EOSINOPHILIA
     Dosage: 200 MG/D
     Route: 048
     Dates: start: 20040123

REACTIONS (2)
  - GASTROINTESTINAL HAEMORRHAGE [None]
  - PNEUMONIA [None]
